FAERS Safety Report 9743501 (Version 1)
Quarter: 2013Q4

REPORT INFORMATION
  Report Type: Spontaneous
  Country: US (occurrence: US)
  Receive Date: 20131210
  Receipt Date: 20131210
  Transmission Date: 20140711
  Serious: No
  Sender: FDA-Public Use
  Company Number: US-TEVA-383824USA

PATIENT
  Age: 19 Year
  Sex: Female
  Weight: 73.09 kg

DRUGS (2)
  1. PARAGARD 380A [Suspect]
     Indication: CONTRACEPTION
     Route: 015
     Dates: start: 20120820, end: 20130122
  2. KETOROLAC TROMETHAMINE [Concomitant]
     Indication: FACTOR V LEIDEN MUTATION

REACTIONS (1)
  - Device expulsion [Unknown]
